FAERS Safety Report 8183187-7 (Version None)
Quarter: 2012Q1

REPORT INFORMATION
  Report Type: 
  Country: None (occurrence: None)
  Receive Date: 20120305
  Receipt Date: 20120223
  Transmission Date: 20120608
  Serious: Yes (Death)
  Sender: FDA-Public Use
  Company Number: JP-SANOFI-AVENTIS-2011SA084889

PATIENT
  Age: 66 Year
  Sex: Male
  Weight: 57.5 kg

DRUGS (6)
  1. METFORMIN HCL [Concomitant]
     Route: 048
     Dates: start: 20010713
  2. AMARYL [Concomitant]
     Dosage: STRENGTH: 3MG
     Route: 048
     Dates: start: 20000707
  3. BASEN [Concomitant]
     Dosage: STRENGTH: 0.3 MG
     Route: 048
     Dates: start: 20030411
  4. LANTUS [Suspect]
     Indication: TYPE 2 DIABETES MELLITUS
     Dosage: DOSE:12 UNIT(S)
     Route: 058
     Dates: start: 20090123, end: 20111101
  5. SOLOSTAR [Suspect]
     Indication: DEVICE THERAPY
     Dates: start: 20090123, end: 20111101
  6. HUMALOG [Concomitant]
     Dosage: DOSE:12 UNIT(S)
     Route: 058
     Dates: start: 20071024

REACTIONS (1)
  - LUNG NEOPLASM MALIGNANT [None]
